FAERS Safety Report 7986660-7 (Version None)
Quarter: 2011Q4

REPORT INFORMATION
  Report Type: 
  Country: None (occurrence: None)
  Receive Date: 20111216
  Receipt Date: 20110318
  Transmission Date: 20120403
  Serious: Yes (Hospitalization)
  Sender: FDA-Public Use
  Company Number: US-BRISTOL-MYERS SQUIBB COMPANY-15552730

PATIENT
  Age: 17 Year
  Sex: Male
  Weight: 63 kg

DRUGS (4)
  1. HYDROXYZINE [Concomitant]
  2. LEXAPRO [Concomitant]
  3. ABILIFY [Suspect]
     Dosage: STARTED IN LATE DEC2010 + EARLY JAN2011
  4. WELLBUTRIN [Concomitant]

REACTIONS (1)
  - DRUG INEFFECTIVE [None]
